FAERS Safety Report 13853832 (Version 1)
Quarter: 2017Q3

REPORT INFORMATION
  Report Type: Spontaneous
  Country: US (occurrence: US)
  Receive Date: 20170809
  Receipt Date: 20170809
  Transmission Date: 20171127
  Serious: No
  Sender: FDA-Public Use
  Company Number: US-ELI_LILLY_AND_COMPANY-US201707012747

PATIENT
  Sex: Male

DRUGS (9)
  1. TAMSULOSIN [Concomitant]
     Active Substance: TAMSULOSIN
     Indication: PROSTATIC DISORDER
  2. CLOMIPHENE CITRATE. [Concomitant]
     Active Substance: CLOMIPHENE CITRATE
     Indication: BLOOD TESTOSTERONE ABNORMAL
  3. TRULICITY [Suspect]
     Active Substance: DULAGLUTIDE
     Dosage: 1.5 MG, UNKNOWN
     Route: 065
  4. LOSARTAN. [Concomitant]
     Active Substance: LOSARTAN
     Indication: HYPERTENSION
  5. TRULICITY [Suspect]
     Active Substance: DULAGLUTIDE
     Indication: GLUCOSE TOLERANCE IMPAIRED
     Dosage: 0.75 MG, UNKNOWN
     Route: 065
     Dates: start: 201702
  6. TRULICITY [Suspect]
     Active Substance: DULAGLUTIDE
     Dosage: 1.5 MG, UNKNOWN
     Route: 065
  7. OMEPRAZOLE. [Concomitant]
     Active Substance: OMEPRAZOLE
  8. HYDROCHLOROTHIAZIDE. [Concomitant]
     Active Substance: HYDROCHLOROTHIAZIDE
     Indication: HYPERTENSION
  9. TRULICITY [Suspect]
     Active Substance: DULAGLUTIDE
     Dosage: 1.5 MG, UNKNOWN
     Route: 065

REACTIONS (7)
  - Blood glucose increased [Not Recovered/Not Resolved]
  - Drug ineffective [Unknown]
  - Off label use [Unknown]
  - Anxiety [Not Recovered/Not Resolved]
  - Thyroid mass [Not Recovered/Not Resolved]
  - Glycosylated haemoglobin increased [Recovered/Resolved]
  - Stress [Not Recovered/Not Resolved]

NARRATIVE: CASE EVENT DATE: 201704
